FAERS Safety Report 9409862 (Version 1)
Quarter: 2013Q3

REPORT INFORMATION
  Report Type: Spontaneous
  Country: PH (occurrence: PH)
  Receive Date: 20130719
  Receipt Date: 20130719
  Transmission Date: 20140515
  Serious: Yes (Other)
  Sender: FDA-Public Use
  Company Number: PH-009507513-1307PHL008162

PATIENT
  Sex: Female

DRUGS (1)
  1. JANUMET [Suspect]
     Dosage: 50/500 MG ONE TABLET ONCE A DAY
     Route: 048

REACTIONS (3)
  - Breast cancer [Unknown]
  - Mastectomy [Unknown]
  - Inappropriate schedule of drug administration [Unknown]
